FAERS Safety Report 5635432-7 (Version None)
Quarter: 2008Q1

REPORT INFORMATION
  Report Type: 
  Country: None (occurrence: None)
  Receive Date: 20080222
  Receipt Date: 20080211
  Transmission Date: 20080703
  Serious: Yes (Death, Life-Threatening, Hospitalization)
  Sender: FDA-Public Use
  Company Number: DE-ABBOTT-08P-062-0435837-00

PATIENT
  Sex: Female

DRUGS (27)
  1. ERGENYL [Suspect]
     Indication: EPILEPSY
  2. ISOPTIN [Suspect]
     Indication: TACHYCARDIA PAROXYSMAL
     Dates: start: 20030314
  3. ISOPTIN [Suspect]
     Dates: end: 20030331
  4. PANTOPRAZOLE [Suspect]
     Indication: DRUG USE FOR UNKNOWN INDICATION
     Dates: start: 20030314
  5. CLEMASTINE FUMARATE [Suspect]
     Indication: DERMATITIS
     Dosage: INTRAGASTRAL
     Route: 048
     Dates: start: 20030403, end: 20030409
  6. METOCLOPRAMIDE [Suspect]
     Indication: NAUSEA
     Dates: start: 20070409
  7. METOCLOPRAMIDE [Suspect]
     Indication: VOMITING
  8. DIAZEPAM [Suspect]
     Indication: GRAND MAL CONVULSION
     Dates: start: 20030313, end: 20030409
  9. CARBAMAZEPINE [Suspect]
     Indication: GRAND MAL CONVULSION
     Dates: start: 20030201, end: 20030416
  10. DIGITOXIN INJ [Suspect]
     Indication: TACHYCARDIA PAROXYSMAL
     Dates: start: 20030304
  11. CLONAZEPAM [Suspect]
     Indication: GRAND MAL CONVULSION
     Dates: start: 20030331, end: 20030409
  12. THEOPHYLLINE [Suspect]
     Indication: DRUG USE FOR UNKNOWN INDICATION
     Dates: start: 20030314
  13. BUDESONIDE [Suspect]
     Indication: CHRONIC OBSTRUCTIVE PULMONARY DISEASE
     Route: 055
     Dates: start: 20030327
  14. BUDESONIDE [Suspect]
     Route: 055
     Dates: end: 20030329
  15. SALMETEROL XINAFOATE [Suspect]
     Indication: CHRONIC OBSTRUCTIVE PULMONARY DISEASE
     Route: 055
     Dates: start: 20030327, end: 20030329
  16. MELPERONE HYDROCHLORIDE [Suspect]
     Indication: SLEEP DISORDER
     Dates: start: 20030327, end: 20030330
  17. PHENPROCOUMON [Suspect]
     Indication: THROMBOSIS PROPHYLAXIS
     Dates: start: 20030314, end: 20030406
  18. PREDNISOLONE [Suspect]
     Indication: DERMATITIS
     Dates: start: 20030320, end: 20030411
  19. DIGOXIN [Suspect]
     Indication: TACHYCARDIA PAROXYSMAL
     Dates: start: 20030314, end: 20030416
  20. CLOPIDOGREL [Suspect]
     Indication: THROMBOSIS PROPHYLAXIS
     Dates: start: 20030225
  21. DYTIDE [Suspect]
     Indication: ESSENTIAL HYPERTENSION
     Dates: start: 20030314
  22. FEXOFENADINE [Suspect]
     Indication: DERMATITIS
     Dates: start: 20030409, end: 20030410
  23. ENOXAPARIN SODIUM [Suspect]
     Indication: THROMBOSIS PROPHYLAXIS
     Route: 058
     Dates: start: 20030409, end: 20030416
  24. REPETIN [Suspect]
     Indication: PRURITUS
     Dates: start: 20030410, end: 20030416
  25. CORNEREGEL [Suspect]
     Indication: CONJUNCTIVITIS
     Dates: start: 20030412, end: 20030416
  26. DUOVENT [Suspect]
     Indication: CHRONIC OBSTRUCTIVE PULMONARY DISEASE
     Dates: start: 20030412, end: 20030416
  27. CLOBAZAM [Suspect]
     Indication: EPILEPSY
     Dates: start: 20030416

REACTIONS (7)
  - NIKOLSKY'S SIGN [None]
  - PAIN OF SKIN [None]
  - PRURITUS [None]
  - SKIN LESION [None]
  - SKIN REACTION [None]
  - STEVENS-JOHNSON SYNDROME [None]
  - TOXIC EPIDERMAL NECROLYSIS [None]
